FAERS Safety Report 17719296 (Version 1)
Quarter: 2020Q2

REPORT INFORMATION
  Report Type: Spontaneous
  Country: US (occurrence: US)
  Receive Date: 20200428
  Receipt Date: 20200428
  Transmission Date: 20200714
  Serious: Yes (Hospitalization)
  Sender: FDA-Public Use
  Company Number: None

PATIENT
  Age: 75 Year
  Sex: Male
  Weight: 89.81 kg

DRUGS (22)
  1. ALPHAGAN P 0.1%, SONATA 5MG [Concomitant]
  2. MIRALAX [Concomitant]
     Active Substance: POLYETHYLENE GLYCOL 3350
  3. MUCINEX [Concomitant]
     Active Substance: GUAIFENESIN
  4. LUPRON DEPOT [Concomitant]
     Active Substance: LEUPROLIDE ACETATE
  5. METOPROLOL ER 25MG [Concomitant]
  6. NAPROXEN. [Concomitant]
     Active Substance: NAPROXEN
  7. METAMUCIL [Concomitant]
     Active Substance: PLANTAGO SEED
  8. ABIRATERONE. [Suspect]
     Active Substance: ABIRATERONE ACETATE
     Indication: PROSTATIC DISORDER
     Route: 048
  9. ALLOPURINOL 300MG, RESTASIS [Concomitant]
  10. ATOWASTATIN 80 MG, TRUSOPT 2% [Concomitant]
  11. GERI-KOT 8.6MG [Concomitant]
  12. IAMOTN^GINE 150MG [Concomitant]
  13. ASPIRIN 81MG, TAMSULOSIN 0.4MG [Concomitant]
  14. NORCO 5-325MG [Concomitant]
  15. ADVAIR 250-50, PREDNISONE 5MG [Concomitant]
  16. GEODON 40MG, POTASSIUM CHLORIDE 20MEQ [Concomitant]
  17. MELATONIN 3MG [Concomitant]
  18. CLONAZEPAM 0.5MG, VENTOLIN HFA [Concomitant]
  19. FOLIC ACID 1MG, XALATAN [Concomitant]
  20. ISOSORIDE MONONITRATE 30MG [Concomitant]
  21. OMEPRAZOLE 40MG [Concomitant]
     Active Substance: OMEPRAZOLE
  22. PAROXETINE. [Concomitant]
     Active Substance: PAROXETINE

REACTIONS (1)
  - Acute respiratory failure [None]

NARRATIVE: CASE EVENT DATE: 20200419
